FAERS Safety Report 8457664-5 (Version None)
Quarter: 2012Q2

REPORT INFORMATION
  Report Type: 
  Country: None (occurrence: None)
  Receive Date: 20120622
  Receipt Date: 20120618
  Transmission Date: 20120825
  Serious: No
  Sender: FDA-Public Use
  Company Number: US-PFIZER INC-2012146685

PATIENT
  Sex: Female
  Weight: 97.959 kg

DRUGS (4)
  1. CHANTIX [Suspect]
     Dosage: 1 MG, 2X/DAY
     Route: 048
     Dates: start: 20120101
  2. CHANTIX [Suspect]
     Indication: SMOKING CESSATION THERAPY
     Dosage: 0.5 MG, 1X/DAY
     Route: 048
     Dates: start: 20120529, end: 20120101
  3. IBUPROFEN [Concomitant]
     Indication: ARTHRITIS
  4. IBUPROFEN [Concomitant]
     Indication: OSTEOARTHRITIS
     Dosage: UNK

REACTIONS (7)
  - CONSTIPATION [None]
  - HEADACHE [None]
  - NAUSEA [None]
  - FLATULENCE [None]
  - AGITATION [None]
  - SLEEP DISORDER [None]
  - RESTLESSNESS [None]
